FAERS Safety Report 16329186 (Version 2)
Quarter: 2019Q2

REPORT INFORMATION
  Report Type: Spontaneous
  Country: US (occurrence: US)
  Receive Date: 20190520
  Receipt Date: 20190629
  Transmission Date: 20190711
  Serious: No
  Sender: FDA-Public Use
  Company Number: US-TEVA-2019-US-1047380

PATIENT

DRUGS (1)
  1. METHYLPREDNISOLONE ACETATE 80MG 1ML SDV [Suspect]
     Active Substance: METHYLPREDNISOLONE ACETATE
     Dosage: 80MG 1ML
     Route: 065

REACTIONS (1)
  - Skin reaction [Unknown]
